FAERS Safety Report 12562019 (Version 1)
Quarter: 2016Q3

REPORT INFORMATION
  Report Type: Spontaneous
  Country: FR (occurrence: FR)
  Receive Date: 20160715
  Receipt Date: 20160715
  Transmission Date: 20161109
  Serious: Yes (Other)
  Sender: FDA-Public Use
  Company Number: FR-ASTRAZENECA-2016SE74961

PATIENT
  Age: 64 Year
  Sex: Female

DRUGS (2)
  1. CALCIUM [Concomitant]
     Active Substance: CALCIUM
     Indication: OSTEOPOROSIS
  2. ARIMIDEX [Suspect]
     Active Substance: ANASTROZOLE
     Indication: BREAST CANCER
     Route: 048
     Dates: start: 201407, end: 201507

REACTIONS (4)
  - Fall [Recovered/Resolved]
  - Weight increased [Not Recovered/Not Resolved]
  - Dysstasia [Recovered/Resolved]
  - Musculoskeletal stiffness [Recovered/Resolved]
